FAERS Safety Report 9372623 (Version 1)
Quarter: 2013Q2

REPORT INFORMATION
  Report Type: Report from Study
  Country: US (occurrence: US)
  Receive Date: 20130627
  Receipt Date: 20130627
  Transmission Date: 20140414
  Serious: Yes (Death)
  Sender: FDA-Public Use
  Company Number: US-MYLANLABS-2013S1002997

PATIENT
  Age: 94 Year
  Sex: Female

DRUGS (12)
  1. CLOZAPINE TABLETS [Suspect]
     Route: 048
  2. LORAZEPAM [Concomitant]
  3. ONDANSETRON [Concomitant]
  4. OXYCODONE [Concomitant]
  5. RANITIDINE [Concomitant]
  6. IRON [Concomitant]
  7. BENADRYL [Concomitant]
  8. FUROSEMIDE [Concomitant]
  9. TYLENOL [Concomitant]
  10. LAMOTIL [Concomitant]
  11. CENTRUM SILVER [Concomitant]
  12. VICODIN [Concomitant]
     Dosage: 5MG/500MG

REACTIONS (1)
  - Death [Fatal]
